FAERS Safety Report 16283349 (Version 2)
Quarter: 2019Q2

REPORT INFORMATION
  Report Type: Report from Study
  Country: DE (occurrence: DE)
  Receive Date: 20190507
  Receipt Date: 20190514
  Transmission Date: 20190711
  Serious: Yes (Hospitalization, Other)
  Sender: FDA-Public Use
  Company Number: DE-ACTELION-A-NJ2019-190050

PATIENT
  Age: 80 Year
  Sex: Male

DRUGS (2)
  1. VENTAVIS [Suspect]
     Active Substance: ILOPROST
     Dosage: 10 MCG, 5X/DAY
     Route: 055
     Dates: start: 20190503
  2. VENTAVIS [Suspect]
     Active Substance: ILOPROST
     Indication: PULMONARY ARTERIAL HYPERTENSION
     Dosage: 10 MCG, 5X/DAY
     Route: 055
     Dates: start: 20190426, end: 20190427

REACTIONS (2)
  - Circulatory collapse [Recovered/Resolved]
  - Oxygen saturation decreased [Recovered/Resolved]

NARRATIVE: CASE EVENT DATE: 20190427
